FAERS Safety Report 9103645 (Version 1)
Quarter: 2013Q1

REPORT INFORMATION
  Report Type: Spontaneous
  Country: JP (occurrence: JP)
  Receive Date: 20130219
  Receipt Date: 20130219
  Transmission Date: 20140127
  Serious: Yes (Hospitalization)
  Sender: FDA-Public Use
  Company Number: JP-PFIZER INC-2013031029

PATIENT
  Age: 70 Year
  Sex: Male

DRUGS (3)
  1. NORVASC [Suspect]
     Indication: HYPERTENSION
     Dosage: 5 MG/DAY
     Route: 048
  2. DIOVAN [Concomitant]
     Indication: HYPERTENSION
     Dosage: 40 MG/DAY
     Route: 048
  3. VASOLAN [Concomitant]
     Indication: SUPRAVENTRICULAR TACHYCARDIA
     Dosage: 160 MG/DAY
     Route: 048

REACTIONS (1)
  - Osteoma [Recovered/Resolved]
